FAERS Safety Report 16649546 (Version 1)
Quarter: 2019Q3

REPORT INFORMATION
  Report Type: Spontaneous
  Country: PT (occurrence: PT)
  Receive Date: 20190730
  Receipt Date: 20190730
  Transmission Date: 20191004
  Serious: Yes (Hospitalization, Other)
  Sender: FDA-Public Use
  Company Number: PT-B.I. PHARMACEUTICALS,INC./RIDGEFIELD-2019-BI-030976

PATIENT
  Age: 67 Year
  Sex: Female

DRUGS (12)
  1. SPIRONOLACTONE. [Concomitant]
     Active Substance: SPIRONOLACTONE
     Indication: PRODUCT USED FOR UNKNOWN INDICATION
     Route: 065
  2. TRAJENTA [Suspect]
     Active Substance: LINAGLIPTIN
     Indication: PRODUCT USED FOR UNKNOWN INDICATION
     Route: 065
  3. DILTIAZEM. [Concomitant]
     Active Substance: DILTIAZEM
     Indication: PRODUCT USED FOR UNKNOWN INDICATION
     Route: 065
  4. METOLAZONE. [Concomitant]
     Active Substance: METOLAZONE
     Indication: PRODUCT USED FOR UNKNOWN INDICATION
     Route: 065
  5. FUROSEMIDE. [Concomitant]
     Active Substance: FUROSEMIDE
     Indication: PRODUCT USED FOR UNKNOWN INDICATION
     Route: 065
  6. ACETYLSALICYLIC ACID [Concomitant]
     Active Substance: ASPIRIN
     Indication: PRODUCT USED FOR UNKNOWN INDICATION
     Route: 065
  7. INSULINE ASPARTATE [Concomitant]
     Indication: PRODUCT USED FOR UNKNOWN INDICATION
     Route: 065
  8. IMIPENEM [Suspect]
     Active Substance: IMIPENEM
     Indication: PRODUCT USED FOR UNKNOWN INDICATION
     Route: 065
  9. RAMIPRIL. [Concomitant]
     Active Substance: RAMIPRIL
     Indication: PRODUCT USED FOR UNKNOWN INDICATION
     Route: 065
  10. BISOPROLOL [Concomitant]
     Active Substance: BISOPROLOL
     Indication: PRODUCT USED FOR UNKNOWN INDICATION
     Route: 065
  11. ALLOPURINOL. [Concomitant]
     Active Substance: ALLOPURINOL
     Indication: PRODUCT USED FOR UNKNOWN INDICATION
     Route: 065
  12. ERTAPENEM. [Suspect]
     Active Substance: ERTAPENEM SODIUM
     Indication: DEVICE RELATED INFECTION
     Route: 065

REACTIONS (32)
  - Pyrexia [Recovered/Resolved]
  - Acute psychosis [Recovered/Resolved]
  - Disorientation [Recovered/Resolved]
  - Arthritis [Recovered/Resolved]
  - Klebsiella infection [Recovered/Resolved]
  - Neurotoxicity [Recovered/Resolved]
  - Oedema peripheral [Recovered/Resolved]
  - Inflammatory marker increased [Recovered/Resolved]
  - Device related infection [Recovered/Resolved]
  - Hallucination, visual [Recovered/Resolved]
  - Attention deficit/hyperactivity disorder [Recovered/Resolved]
  - Psychomotor hyperactivity [Recovered/Resolved]
  - Staphylococcal sepsis [Recovered/Resolved]
  - Pyrexia [Recovered/Resolved]
  - Pseudomonas infection [Recovered/Resolved]
  - Urinary tract infection [Recovered/Resolved]
  - Poor quality sleep [Recovered/Resolved]
  - Oedema [Recovered/Resolved]
  - Synovitis [Recovered/Resolved]
  - Staphylococcal infection [Recovered/Resolved]
  - Joint effusion [Recovered/Resolved]
  - Catheter site inflammation [Recovered/Resolved]
  - Enterobacter bacteraemia [Recovered/Resolved]
  - Intervertebral discitis [Recovered/Resolved]
  - Delirium [Recovered/Resolved]
  - Clonus [Recovered/Resolved]
  - Asterixis [Recovered/Resolved]
  - Sepsis [Recovered/Resolved]
  - Back pain [Recovered/Resolved]
  - Septic shock [Recovered/Resolved]
  - Delirium [Recovered/Resolved]
  - Metabolic disorder [Unknown]

NARRATIVE: CASE EVENT DATE: 2017
